FAERS Safety Report 22384295 (Version 1)
Quarter: 2023Q2

REPORT INFORMATION
  Report Type: Spontaneous
  Country: US (occurrence: US)
  Receive Date: 20230530
  Receipt Date: 20230530
  Transmission Date: 20230721
  Serious: Yes (Death, Other)
  Sender: FDA-Public Use
  Company Number: US-AMNEAL PHARMACEUTICALS-2023-AMRX-01803

PATIENT

DRUGS (1)
  1. EMTRICITABINE AND TENOFOVIR DISOPROXIL FUMARATE [Suspect]
     Active Substance: EMTRICITABINE\TENOFOVIR DISOPROXIL FUMARATE
     Indication: Third trimester pregnancy
     Dosage: UNK
     Route: 064

REACTIONS (2)
  - Death neonatal [Fatal]
  - Foetal exposure during pregnancy [Unknown]
